FAERS Safety Report 4413632-1 (Version None)
Quarter: 2004Q2

REPORT INFORMATION
  Report Type: 
  Country: None (occurrence: None)
  Receive Date: 20040630
  Receipt Date: 20040301
  Transmission Date: 20050107
  Serious: No
  Sender: FDA-Public Use
  Company Number: 04P-163-0251751-00

PATIENT
  Age: 54 Year
  Sex: Female
  Weight: 89.8122 kg

DRUGS (8)
  1. HUMIRA [Suspect]
     Indication: RHEUMATOID ARTHRITIS
     Dosage: 40 MG, 1 IN 2 WK, SUBCUTANEOUS
     Route: 058
     Dates: start: 20030101, end: 20030101
  2. CLOPIDOGREL BISULFATE [Concomitant]
  3. SIMVASTATIN [Concomitant]
  4. METHOTREXATE [Concomitant]
  5. FOLIC ACID [Concomitant]
  6. FLUTICASONE PROPIONATE [Concomitant]
  7. ASCORBIC ACID [Concomitant]
  8. TOCOPHEROL CONCENTRATE CAP [Concomitant]

REACTIONS (2)
  - HERPES ZOSTER [None]
  - UPPER RESPIRATORY TRACT INFECTION [None]
